FAERS Safety Report 19376020 (Version 1)
Quarter: 2021Q2

REPORT INFORMATION
  Report Type: Spontaneous
  Country: US (occurrence: US)
  Receive Date: 20210604
  Receipt Date: 20210604
  Transmission Date: 20210717
  Serious: No
  Sender: FDA-Public Use
  Company Number: US-BRAINTREE LABORATORIES, INC.-2020BTE04375

PATIENT
  Sex: Female

DRUGS (1)
  1. PEG?3350, SODIUM CHLORIDE, SODIUM BICARBONATE AND POTASSIUM CHLORIDE [Suspect]
     Active Substance: POLYETHYLENE GLYCOL 3350\POTASSIUM CHLORIDE\SODIUM BICARBONATE\SODIUM CHLORIDE
     Indication: COLONOSCOPY
     Dosage: 0.9L
     Route: 048
     Dates: start: 20200806, end: 20200806

REACTIONS (5)
  - Disturbance in attention [None]
  - Weight increased [None]
  - Somnolence [None]
  - Dry throat [None]
  - Headache [None]

NARRATIVE: CASE EVENT DATE: 20200806
